FAERS Safety Report 10619328 (Version 1)
Quarter: 2014Q4

REPORT INFORMATION
  Report Type: Spontaneous
  Country: US (occurrence: US)
  Receive Date: 20141202
  Receipt Date: 20141202
  Transmission Date: 20150529
  Serious: No
  Sender: FDA-Public Use
  Company Number: US-009507513-1412USA000770

PATIENT
  Age: 19 Year
  Sex: Female
  Weight: 140 kg

DRUGS (1)
  1. NUVARING [Suspect]
     Active Substance: ETHINYL ESTRADIOL\ETONOGESTREL
     Indication: CONTRACEPTION
     Dosage: 1 RING FOR A 4 WEEK USE
     Dates: start: 201410

REACTIONS (4)
  - Dyspareunia [Unknown]
  - Vaginal haemorrhage [Unknown]
  - Metrorrhagia [Unknown]
  - Breast tenderness [Unknown]

NARRATIVE: CASE EVENT DATE: 201411
